FAERS Safety Report 12612109 (Version 1)
Quarter: 2016Q3

REPORT INFORMATION
  Report Type: Spontaneous
  Country: DE (occurrence: DE)
  Receive Date: 20160801
  Receipt Date: 20160801
  Transmission Date: 20161109
  Serious: Yes (Hospitalization)
  Sender: FDA-Public Use
  Company Number: DE-GLAXOSMITHKLINE-DE2016GSK104048

PATIENT
  Age: 83 Year
  Sex: Female
  Weight: 105 kg

DRUGS (2)
  1. VOLTAREN SCHMERZGEL FORTE [Suspect]
     Active Substance: DICLOFENAC DIETHYLAMINE
     Indication: ARTHRALGIA
     Dosage: 32 UNK, TID
     Dates: start: 20160208, end: 20160221
  2. MARCOUMAR [Concomitant]
     Active Substance: PHENPROCOUMON

REACTIONS (3)
  - Abdominal pain upper [Recovered/Resolved]
  - International normalised ratio increased [Recovered/Resolved]
  - Epistaxis [Recovered/Resolved]

NARRATIVE: CASE EVENT DATE: 20160221
